FAERS Safety Report 6016453-1 (Version None)
Quarter: 2008Q4

REPORT INFORMATION
  Report Type: 
  Country: None (occurrence: None)
  Receive Date: 20081222
  Receipt Date: 20081219
  Transmission Date: 20090506
  Serious: Yes (Death)
  Sender: FDA-Public Use
  Company Number: US-ELI_LILLY_AND_COMPANY-US200706003141

PATIENT
  Sex: Male
  Weight: 101.13 kg

DRUGS (13)
  1. SOMATROPIN [Suspect]
     Indication: HYPOPITUITARISM
     Dosage: 0.4 MG, DAILY (1/D)
     Route: 030
     Dates: start: 20030114
  2. TESTOSTERONE [Concomitant]
     Indication: HYPOGONADISM MALE
  3. NEXIUM [Concomitant]
     Indication: GASTROOESOPHAGEAL REFLUX DISEASE
  4. HYDROCORTISONE [Concomitant]
     Indication: ADRENAL INSUFFICIENCY
  5. ALLOPURINOL [Concomitant]
     Indication: GOUT
  6. CELEBREX [Concomitant]
     Indication: OSTEOARTHRITIS
  7. ROBAXIN [Concomitant]
     Indication: MUSCLE RELAXANT THERAPY
  8. SYNTHROID [Concomitant]
     Indication: HYPOTHYROIDISM
  9. ALBUTEROL [Concomitant]
     Indication: ASTHMA
  10. ATROVENT [Concomitant]
     Indication: ASTHMA
  11. LIPITOR [Concomitant]
     Indication: DYSLIPIDAEMIA
  12. LASIX [Concomitant]
     Indication: DIURETIC THERAPY
  13. KAY CIEL DURA-TABS [Concomitant]
     Indication: BLOOD POTASSIUM DECREASED

REACTIONS (1)
  - BRAIN NEOPLASM MALIGNANT [None]
